FAERS Safety Report 4577534-2 (Version None)
Quarter: 2005Q1

REPORT INFORMATION
  Report Type: 
  Country: None (occurrence: None)
  Receive Date: 20050208
  Receipt Date: 20050201
  Transmission Date: 20050727
  Serious: No
  Sender: FDA-Public Use
  Company Number: 2005CG00252

PATIENT
  Age: 46 Year
  Sex: Female

DRUGS (1)
  1. ARIMIDEX [Suspect]
     Indication: BREAST CANCER
     Dosage: 1 MG QD PO
     Route: 048
     Dates: start: 20000101

REACTIONS (1)
  - PLEURAL EFFUSION [None]
